FAERS Safety Report 5262881-1 (Version None)
Quarter: 2007Q1

REPORT INFORMATION
  Report Type: 
  Country: None (occurrence: None)
  Receive Date: 20070312
  Receipt Date: 20070302
  Transmission Date: 20070707
  Serious: Yes (Hospitalization)
  Sender: FDA-Public Use
  Company Number: FR-NOVOPROD-261211

PATIENT
  Sex: Female

DRUGS (5)
  1. ACTRAPID [Suspect]
     Indication: DIABETES MELLITUS INSULIN-DEPENDENT
     Route: 058
     Dates: start: 20060101
  2. INSULATARD FLEXPEN [Suspect]
     Indication: DIABETES MELLITUS INSULIN-DEPENDENT
     Route: 058
     Dates: start: 20051201
  3. DEPAKENE [Suspect]
     Indication: EPILEPSY
     Dosage: 1500 MG, QD
     Route: 048
     Dates: start: 19900101, end: 20050101
  4. LANTUS [Suspect]
     Dosage: UNK, UNK
     Dates: start: 19950101, end: 20051201
  5. HUMALOG                            /00030501/ [Concomitant]
     Dates: end: 20051201

REACTIONS (8)
  - ABORTION INDUCED [None]
  - DRUG EXPOSURE DURING PREGNANCY [None]
  - GLYCOSYLATED HAEMOGLOBIN INCREASED [None]
  - HYPOGLYCAEMIA [None]
  - POLYHYDRAMNIOS [None]
  - PREGNANCY [None]
  - PREMATURE LABOUR [None]
  - THREATENED LABOUR [None]
